FAERS Safety Report 20698690 (Version 7)
Quarter: 2022Q4

REPORT INFORMATION
  Report Type: Report from Study
  Country: US (occurrence: US)
  Receive Date: 20220412
  Receipt Date: 20221213
  Transmission Date: 20230113
  Serious: No
  Sender: FDA-Public Use
  Company Number: US-NOVARTISTESTPH-NVSC2022US082298

PATIENT
  Sex: Female
  Weight: 101.15 kg

DRUGS (1)
  1. KESIMPTA [Suspect]
     Active Substance: OFATUMUMAB
     Indication: Product used for unknown indication
     Dosage: 20 MG, QMO
     Route: 058
     Dates: start: 20220325

REACTIONS (6)
  - Abdominal discomfort [Unknown]
  - Headache [Unknown]
  - Breast tenderness [Unknown]
  - Fatigue [Unknown]
  - Diarrhoea [Unknown]
  - Flushing [Unknown]
